FAERS Safety Report 9143743 (Version 3)
Quarter: 2013Q3

REPORT INFORMATION
  Report Type: Spontaneous
  Country: FR (occurrence: FR)
  Receive Date: 20130306
  Receipt Date: 20130816
  Transmission Date: 20140515
  Serious: Yes (Life-Threatening, Other)
  Sender: FDA-Public Use
  Company Number: FR-EISAI INC-E7389-03591-SPO-FR

PATIENT
  Age: 70 Year
  Sex: Female

DRUGS (1)
  1. HALAVEN [Suspect]
     Dosage: UNKNOWN

REACTIONS (2)
  - Cardiac failure [Recovering/Resolving]
  - Pleural effusion [Unknown]
